FAERS Safety Report 21796793 (Version 7)
Quarter: 2023Q4

REPORT INFORMATION
  Report Type: Spontaneous
  Country: AU (occurrence: AU)
  Receive Date: 20221230
  Receipt Date: 20231019
  Transmission Date: 20240110
  Serious: Yes (Death, Life-Threatening, Hospitalization, Other)
  Sender: FDA-Public Use
  Company Number: AU-BEIGENE AUS PTY LTD-BGN-2022-012063

PATIENT
  Age: 61 Year
  Sex: Female
  Weight: 78 kg

DRUGS (35)
  1. AZACITIDINE [Suspect]
     Active Substance: AZACITIDINE
     Indication: Myelodysplastic syndrome
     Dosage: 131 MILLIGRAM, QD
     Route: 042
     Dates: start: 20221108
  2. AZACITIDINE [Suspect]
     Active Substance: AZACITIDINE
     Dosage: 131 MILLIGRAM, QD
     Route: 042
     Dates: start: 20221115
  3. AZACITIDINE [Suspect]
     Active Substance: AZACITIDINE
     Route: 042
     Dates: start: 20221219
  4. AZACITIDINE [Suspect]
     Active Substance: AZACITIDINE
     Route: 042
     Dates: start: 20221224
  5. BGB-11417 [Suspect]
     Active Substance: BGB-11417
     Indication: Myelodysplastic syndrome
     Dates: start: 20221108
  6. BGB-11417 [Suspect]
     Active Substance: BGB-11417
     Dates: start: 20221111
  7. BGB-11417 [Suspect]
     Active Substance: BGB-11417
     Dates: start: 20221219, end: 20221226
  8. BGB-11417 [Suspect]
     Active Substance: BGB-11417
     Dates: start: 20221219, end: 20221227
  9. TEMAZEPAM [Concomitant]
     Active Substance: TEMAZEPAM
     Indication: Insomnia
     Dosage: UNK
     Route: 048
     Dates: start: 202208, end: 20221226
  10. CHOLECALCIFEROL [Concomitant]
     Active Substance: CHOLECALCIFEROL
     Indication: Supplementation therapy
     Dosage: UNK
     Dates: end: 20221230
  11. PREDNISOLONE [Concomitant]
     Active Substance: PREDNISOLONE
     Indication: Idiopathic interstitial pneumonia
     Dates: start: 20221127, end: 20221202
  12. PREDNISOLONE [Concomitant]
     Active Substance: PREDNISOLONE
     Dosage: UNK
     Dates: start: 20221203, end: 20221226
  13. GRANULOCYTE COLONY-STIMULATING FACTOR NOS [Concomitant]
     Active Substance: GRANULOCYTE COLONY-STIMULATING FACTOR NOS
     Indication: Prophylaxis
     Dosage: UNK
     Dates: start: 20221205, end: 20221208
  14. GRANULOCYTE COLONY-STIMULATING FACTOR NOS [Concomitant]
     Active Substance: GRANULOCYTE COLONY-STIMULATING FACTOR NOS
     Indication: Neutropenia
     Dates: start: 20221216, end: 20221218
  15. GRANULOCYTE COLONY-STIMULATING FACTOR NOS [Concomitant]
     Active Substance: GRANULOCYTE COLONY-STIMULATING FACTOR NOS
     Dates: start: 20221222, end: 20221230
  16. ESOMEPRAZOLE [Concomitant]
     Active Substance: ESOMEPRAZOLE
     Indication: Prophylaxis
     Dosage: UNK
     Dates: end: 20221226
  17. SPIRONOLACTONE [Concomitant]
     Active Substance: SPIRONOLACTONE
     Indication: Left ventricular failure
     Dates: start: 2022, end: 20221226
  18. BACTRIM DS [Concomitant]
     Active Substance: SULFAMETHOXAZOLE\TRIMETHOPRIM
     Indication: Prophylaxis
     Dates: end: 20221226
  19. FUROSEMIDE [Concomitant]
     Active Substance: FUROSEMIDE
     Indication: Left ventricular failure
     Dates: end: 20221226
  20. MAGNESIUM ASPARTATE [Concomitant]
     Active Substance: MAGNESIUM ASPARTATE
     Indication: Supplementation therapy
     Dosage: UNK
     Dates: end: 20221226
  21. SLOW K [Concomitant]
     Active Substance: POTASSIUM CHLORIDE
     Indication: Supplementation therapy
     Dosage: UNK
     Dates: start: 20221112, end: 20221230
  22. VALACYCLOVIR [Concomitant]
     Active Substance: VALACYCLOVIR HYDROCHLORIDE
     Indication: Antiviral prophylaxis
     Dates: end: 20221226
  23. ALLOPURINOL [Concomitant]
     Active Substance: ALLOPURINOL
     Indication: Prophylaxis
     Dates: start: 2022, end: 20221226
  24. SULFAMETHOXAZOLE [Concomitant]
     Active Substance: SULFAMETHOXAZOLE
     Indication: Prophylaxis
  25. MAGNESIUM ASPARTATE DIHYDRATE [Concomitant]
     Active Substance: MAGNESIUM ASPARTATE DIHYDRATE
     Indication: Supplementation therapy
  26. POTASSIUM CHLORIDE [Concomitant]
     Active Substance: POTASSIUM CHLORIDE
     Indication: Supplementation therapy
  27. POTASSIUM CHLORIDE [Concomitant]
     Active Substance: POTASSIUM CHLORIDE
     Dates: start: 20221112, end: 20221230
  28. CALTRATE [Concomitant]
     Active Substance: CALCIUM CARBONATE
     Indication: Supplementation therapy
     Dates: start: 20221209, end: 20221226
  29. EVUSHELD [Concomitant]
     Active Substance: CILGAVIMAB\TIXAGEVIMAB
     Indication: COVID-19 prophylaxis
     Dates: start: 20221201, end: 20221201
  30. FLUCLOXACILLIN [Concomitant]
     Active Substance: FLUCLOXACILLIN
     Indication: Cellulitis
     Dates: start: 20221223, end: 20221223
  31. FLUCLOXACILLIN [Concomitant]
     Active Substance: FLUCLOXACILLIN
     Indication: Antibiotic prophylaxis
     Dates: start: 20221212, end: 20221217
  32. GRANISETRON [Concomitant]
     Active Substance: GRANISETRON
     Indication: Prophylaxis of nausea and vomiting
     Dates: start: 20221219, end: 20221223
  33. HYDROCORTISONE [Concomitant]
     Active Substance: HYDROCORTISONE
     Indication: Platelet count increased
     Dates: start: 20221223, end: 20221223
  34. MIDODRINE [Concomitant]
     Active Substance: MIDODRINE
     Indication: Blood pressure increased
     Dates: start: 20221223, end: 20221223
  35. MIDODRINE [Concomitant]
     Active Substance: MIDODRINE
     Indication: Hypotension

REACTIONS (3)
  - Appendicitis perforated [Fatal]
  - Sepsis [Unknown]
  - Platelet disorder [Unknown]

NARRATIVE: CASE EVENT DATE: 20221227
